FAERS Safety Report 5938119-6 (Version None)
Quarter: 2008Q4

REPORT INFORMATION
  Report Type: 
  Country: None (occurrence: None)
  Receive Date: 20081031
  Receipt Date: 20081020
  Transmission Date: 20090506
  Serious: Yes (Hospitalization, Disabling)
  Sender: FDA-Public Use
  Company Number: VE-PFIZER INC-2008088583

PATIENT
  Age: 3 Year
  Sex: Female
  Weight: 13 kg

DRUGS (4)
  1. ZITHROMAX [Suspect]
     Indication: PNEUMONIA
     Route: 042
     Dates: start: 20080801, end: 20080801
  2. ROCEPHIN [Concomitant]
  3. RANITIDINE [Concomitant]
  4. AERIUS [Concomitant]
     Route: 048

REACTIONS (2)
  - CARDIAC ARREST [None]
  - INTENTIONAL DRUG MISUSE [None]
